FAERS Safety Report 9442091 (Version 1)
Quarter: 2013Q3

REPORT INFORMATION
  Report Type: Spontaneous
  Country: US (occurrence: US)
  Receive Date: 20130806
  Receipt Date: 20130806
  Transmission Date: 20140515
  Serious: Yes (Hospitalization)
  Sender: FDA-Public Use
  Company Number: US-BAYER-2013-092669

PATIENT
  Age: 30 Year
  Sex: Female
  Weight: 80.14 kg

DRUGS (6)
  1. OCELLA [Suspect]
  2. YASMIN [Suspect]
  3. DILAUDID [Concomitant]
  4. PHENERGAN [Concomitant]
  5. ZOFRAN [Concomitant]
     Indication: NAUSEA
  6. ZOFRAN [Concomitant]
     Indication: VOMITING

REACTIONS (1)
  - Transverse sinus thrombosis [None]
